FAERS Safety Report 12885560 (Version 1)
Quarter: 2016Q4

REPORT INFORMATION
  Report Type: Spontaneous
  Country: US (occurrence: US)
  Receive Date: 20161026
  Receipt Date: 20161026
  Transmission Date: 20170207
  Serious: Yes (Life-Threatening)
  Sender: FDA-Public Use
  Company Number: None

PATIENT
  Age: 55 Year
  Sex: Male
  Weight: 69.4 kg

DRUGS (8)
  1. PROTONIX [Concomitant]
     Active Substance: PANTOPRAZOLE SODIUM
  2. SYNTHROID [Concomitant]
     Active Substance: LEVOTHYROXINE SODIUM
  3. FENTANYL TRANSDERMAL SYSTEM [Suspect]
     Active Substance: FENTANYL
     Indication: OSTEOPOROSIS
     Dosage: FENTANYL TRANSDERMAL SYSTEM - PATCH - 2 PATCHES APPLIEID TO SKIN EVERY 72 HOURS - REMOVE - REPLACE W/NEW
     Dates: start: 20160915, end: 20161010
  4. TRAZODONE [Concomitant]
     Active Substance: TRAZODONE HYDROCHLORIDE
  5. FENTANYL TRANSDERMAL SYSTEM [Suspect]
     Active Substance: FENTANYL
     Indication: THROAT CANCER
     Dosage: FENTANYL TRANSDERMAL SYSTEM - PATCH - 2 PATCHES APPLIEID TO SKIN EVERY 72 HOURS - REMOVE - REPLACE W/NEW
     Dates: start: 20160915, end: 20161010
  6. FENTANYL TRANSDERMAL SYSTEM [Suspect]
     Active Substance: FENTANYL
     Indication: NEUROPATHY PERIPHERAL
     Dosage: FENTANYL TRANSDERMAL SYSTEM - PATCH - 2 PATCHES APPLIEID TO SKIN EVERY 72 HOURS - REMOVE - REPLACE W/NEW
     Dates: start: 20160915, end: 20161010
  7. PROZAC [Concomitant]
     Active Substance: FLUOXETINE HYDROCHLORIDE
  8. DOXYCYCLINE. [Concomitant]
     Active Substance: DOXYCYCLINE

REACTIONS (8)
  - Chest pain [None]
  - Product substitution issue [None]
  - Product quality issue [None]
  - Hyperhidrosis [None]
  - Product formulation issue [None]
  - Confusional state [None]
  - Hypertension [None]
  - Manufacturing issue [None]

NARRATIVE: CASE EVENT DATE: 20160925
